FAERS Safety Report 17589156 (Version 1)
Quarter: 2020Q1

REPORT INFORMATION
  Report Type: Report from Study
  Country: DE (occurrence: DE)
  Receive Date: 20200327
  Receipt Date: 20200327
  Transmission Date: 20200409
  Serious: Yes (Hospitalization)
  Sender: FDA-Public Use
  Company Number: DE-GLAXOSMITHKLINE-DE2020GSK054352

PATIENT

DRUGS (2)
  1. ATOVAQUONE + PROGUANIL HYDROCHLORIDE [Suspect]
     Active Substance: ATOVAQUONE\PROGUANIL HYDROCHLORIDE
     Indication: PLASMODIUM FALCIPARUM INFECTION
     Dosage: UNK
  2. IVERMECTIN. [Concomitant]
     Active Substance: IVERMECTIN
     Indication: MALARIA PROPHYLAXIS
     Dosage: 0.4 MG/KG
     Route: 048

REACTIONS (3)
  - Diarrhoea [Recovered/Resolved]
  - Pyrexia [Recovered/Resolved]
  - Hypotension [Recovered/Resolved]
